FAERS Safety Report 7434453-1 (Version None)
Quarter: 2011Q2

REPORT INFORMATION
  Report Type: 
  Country: None (occurrence: None)
  Receive Date: 20110420
  Receipt Date: 20110420
  Transmission Date: 20111010
  Serious: Yes (Hospitalization)
  Sender: FDA-Public Use
  Company Number: None

PATIENT
  Sex: Male
  Weight: 54 kg

DRUGS (6)
  1. LEUCOVORIN CALCIUM [Suspect]
     Dosage: 1200 MG
     Dates: end: 20110404
  2. OXYCODONE [Concomitant]
  3. BEVACIZUMAB (RHUMAB VEGF) [Suspect]
     Dosage: 15 MG
     Dates: end: 20110404
  4. PEPCID [Concomitant]
  5. OXALIPLATIN (ELOXATIN) [Suspect]
     Dosage: 225 MG
     Dates: end: 20110404
  6. FLUOROURACIL [Suspect]
     Dosage: 1200 MG
     Dates: end: 20110404

REACTIONS (1)
  - ABDOMINAL PAIN [None]
